FAERS Safety Report 7733757-2 (Version None)
Quarter: 2011Q3

REPORT INFORMATION
  Report Type: 
  Country: None (occurrence: None)
  Receive Date: 20110907
  Receipt Date: 20110829
  Transmission Date: 20111222
  Serious: Yes (Hospitalization)
  Sender: FDA-Public Use
  Company Number: PHHY2011AU77463

PATIENT
  Sex: Male

DRUGS (1)
  1. CLOZAPINE [Suspect]
     Dosage: 525 MG, UNK
     Route: 048
     Dates: start: 19930603

REACTIONS (4)
  - LOWER RESPIRATORY TRACT INFECTION [None]
  - PYREXIA [None]
  - LEUKOCYTOSIS [None]
  - NEUTROPHILIA [None]
